FAERS Safety Report 24205727 (Version 1)
Quarter: 2024Q3

REPORT INFORMATION
  Report Type: Spontaneous
  Country: US (occurrence: None)
  Receive Date: 20240813
  Receipt Date: 20240813
  Transmission Date: 20241017
  Serious: Yes (Hospitalization)
  Sender: Public
  Company Number: None

PATIENT
  Sex: Female

DRUGS (4)
  1. OPSUMIT [Suspect]
     Active Substance: MACITENTAN
     Indication: Pulmonary arterial hypertension
     Dosage: FREQUENCY : DAILY;?
     Route: 048
     Dates: start: 202101
  2. REVATIO [Concomitant]
     Active Substance: SILDENAFIL CITRATE
  3. UPTRAVI [Concomitant]
     Active Substance: SELEXIPAG
  4. REVATO [Concomitant]

REACTIONS (2)
  - Heart rate decreased [None]
  - Therapy interrupted [None]
